FAERS Safety Report 21696863 (Version 2)
Quarter: 2023Q1

REPORT INFORMATION
  Report Type: Report from Study
  Country: US (occurrence: None)
  Receive Date: 20221208
  Receipt Date: 20230125
  Transmission Date: 20230418
  Serious: Yes (Death)
  Sender: FDA-Public Use
  Company Number: US-Merck Healthcare KGaA-9370009

PATIENT
  Age: 54 Year
  Sex: Male

DRUGS (1)
  1. REBIF [Suspect]
     Active Substance: INTERFERON BETA-1A
     Indication: Multiple sclerosis
     Dosage: REBI-JECT II/MANUAL
     Route: 058
     Dates: start: 20080109

REACTIONS (2)
  - Aortic dissection [Fatal]
  - Fatigue [Unknown]

NARRATIVE: CASE EVENT DATE: 20221031
